FAERS Safety Report 7553861-1 (Version None)
Quarter: 2011Q2

REPORT INFORMATION
  Report Type: 
  Country: None (occurrence: None)
  Receive Date: 20110617
  Receipt Date: 20110613
  Transmission Date: 20111010
  Serious: Yes (Hospitalization)
  Sender: FDA-Public Use
  Company Number: CN-BRISTOL-MYERS SQUIBB COMPANY-14724504

PATIENT
  Age: 70 Year
  Sex: Female

DRUGS (4)
  1. WARFARIN SODIUM [Suspect]
     Indication: THROMBOSIS PROPHYLAXIS
     Route: 048
     Dates: start: 20090309, end: 20090717
  2. PLACEBO [Suspect]
     Indication: THROMBOSIS PROPHYLAXIS
     Route: 048
     Dates: start: 20090309, end: 20090717
  3. PROPAFENONE HCL [Concomitant]
     Dates: end: 20090718
  4. ISOSORBIDE [Concomitant]
     Dates: end: 20090718

REACTIONS (1)
  - OESOPHAGITIS [None]
